FAERS Safety Report 17959889 (Version 1)
Quarter: 2020Q2

REPORT INFORMATION
  Report Type: Spontaneous
  Country: US (occurrence: US)
  Receive Date: 20200629
  Receipt Date: 20200629
  Transmission Date: 20200714
  Serious: No
  Sender: FDA-Public Use
  Company Number: US-BAUSCH-BL-2020-017476

PATIENT
  Age: 74 Year
  Sex: Female

DRUGS (3)
  1. LATANOPROST OPHTHALMIC SOLUTION 0.005% [Suspect]
     Active Substance: LATANOPROST
     Indication: GLAUCOMA
     Dosage: USING LATANOPROST FOR MANY YEARS, 1 DROP IN EACH EYE AT NIGHT
     Route: 047
  2. LATANOPROST OPHTHALMIC SOLUTION 0.005% [Suspect]
     Active Substance: LATANOPROST
     Dosage: NEW BOTTLE,1 DROP IN EACH EYE AT NIGHT
     Route: 047
  3. TIMOLOL. [Concomitant]
     Active Substance: TIMOLOL
     Indication: PRODUCT USED FOR UNKNOWN INDICATION
     Route: 047

REACTIONS (6)
  - Product closure removal difficult [Unknown]
  - Limb injury [Unknown]
  - Wrong technique in product usage process [Unknown]
  - Product package associated injury [Unknown]
  - Extra dose administered [Unknown]
  - Eye irritation [Unknown]

NARRATIVE: CASE EVENT DATE: 20200616
